FAERS Safety Report 7453323-6 (Version None)
Quarter: 2011Q2

REPORT INFORMATION
  Report Type: 
  Country: None (occurrence: None)
  Receive Date: 20110502
  Receipt Date: 20110425
  Transmission Date: 20111010
  Serious: Yes (Hospitalization)
  Sender: FDA-Public Use
  Company Number: US-BAXTER-2011BH012832

PATIENT
  Sex: Female

DRUGS (2)
  1. DIANEAL [Suspect]
     Indication: PERITONEAL DIALYSIS
     Route: 033
     Dates: start: 20101008
  2. DIANEAL [Suspect]
     Route: 033
     Dates: start: 20101008

REACTIONS (2)
  - TRANSIENT ISCHAEMIC ATTACK [None]
  - MENTAL STATUS CHANGES [None]
